FAERS Safety Report 9947275 (Version 1)
Quarter: 2014Q1

REPORT INFORMATION
  Report Type: Report from Study
  Country: US (occurrence: US)
  Receive Date: 20140303
  Receipt Date: 20140303
  Transmission Date: 20141002
  Serious: No
  Sender: FDA-Public Use
  Company Number: US-ABBVIE-13P-163-1062348-00

PATIENT
  Age: 49 Year
  Sex: Male
  Weight: 72.64 kg

DRUGS (9)
  1. HUMIRA [Suspect]
     Indication: RHEUMATOID ARTHRITIS
     Dates: start: 201210, end: 20130310
  2. HUMIRA [Suspect]
     Dates: start: 20130311
  3. ACIPHEX [Concomitant]
     Indication: PROPHYLAXIS AGAINST GASTROINTESTINAL ULCER
  4. AMITRIPTYLLINE [Concomitant]
     Indication: DEPRESSION
  5. ASPIRIN [Concomitant]
     Indication: CARDIOVASCULAR EVENT PROPHYLAXIS
  6. CRESTOR [Concomitant]
     Indication: BLOOD CHOLESTEROL INCREASED
  7. METHOTREXATE [Concomitant]
     Indication: RHEUMATOID ARTHRITIS
  8. VERAPAMIL [Concomitant]
     Indication: HYPERTENSION
  9. ZOFRAN [Concomitant]
     Indication: NAUSEA

REACTIONS (1)
  - Drug ineffective [Not Recovered/Not Resolved]
